FAERS Safety Report 4969813-1 (Version None)
Quarter: 2006Q2

REPORT INFORMATION
  Report Type: 
  Country: None (occurrence: None)
  Receive Date: 20060411
  Receipt Date: 20060313
  Transmission Date: 20061013
  Serious: Yes (Hospitalization)
  Sender: FDA-Public Use
  Company Number: US-MERCK-0603USA02226

PATIENT
  Age: 57 Year
  Sex: Female
  Weight: 91 kg

DRUGS (3)
  1. VIOXX [Suspect]
     Indication: KNEE OPERATION
     Route: 048
     Dates: start: 20010130, end: 20040501
  2. LOTREL [Concomitant]
     Indication: BLOOD PRESSURE
     Route: 065
  3. GLUCOVANCE [Concomitant]
     Route: 065

REACTIONS (3)
  - INSOMNIA [None]
  - LIMB DISCOMFORT [None]
  - MYOCARDIAL INFARCTION [None]
